FAERS Safety Report 5011736-6 (Version None)
Quarter: 2006Q2

REPORT INFORMATION
  Report Type: 
  Country: None (occurrence: None)
  Receive Date: 20060523
  Receipt Date: 20060523
  Transmission Date: 20061013
  Serious: Yes (Life-Threatening)
  Sender: FDA-Public Use
  Company Number: None

PATIENT
  Sex: Male
  Weight: 107.0489 kg

DRUGS (10)
  1. METHYLPHENIDATE 20 MG [Suspect]
     Indication: ATTENTION DEFICIT/HYPERACTIVITY DISORDER
     Dosage: 20 MG QID PO
     Route: 048
     Dates: start: 20030908, end: 20060126
  2. DIAZEPAM [Concomitant]
  3. DIGOXIN [Concomitant]
  4. FLUOXETINE [Concomitant]
  5. FUROSEMIDE [Concomitant]
  6. NPH INSULIN [Concomitant]
  7. REGULAR INSULIN [Concomitant]
  8. LISINOPRIL [Concomitant]
  9. SIMVASTATIN [Concomitant]
  10. SPRINOLACTONE [Concomitant]

REACTIONS (6)
  - BALANCE DISORDER [None]
  - CEREBROVASCULAR ACCIDENT [None]
  - CONFUSIONAL STATE [None]
  - DYSARTHRIA [None]
  - FALL [None]
  - MOVEMENT DISORDER [None]
